FAERS Safety Report 5703441-5 (Version None)
Quarter: 2008Q2

REPORT INFORMATION
  Report Type: 
  Country: None (occurrence: None)
  Receive Date: 20080411
  Receipt Date: 20080331
  Transmission Date: 20081010
  Serious: Yes (Other)
  Sender: FDA-Public Use
  Company Number: ES-PFIZER INC-2008029526

PATIENT
  Age: 55 Year
  Sex: Male

DRUGS (4)
  1. CABERGOLINE [Suspect]
     Indication: PARKINSON'S DISEASE
     Dosage: DAILY DOSE:4MG
  2. ENALAPRIL MALEATE [Concomitant]
  3. LEVODOPA [Concomitant]
  4. CARBIDOPA [Concomitant]

REACTIONS (2)
  - PLEURAL EFFUSION [None]
  - VOCAL CORD PARALYSIS [None]
